FAERS Safety Report 20174581 (Version 1)
Quarter: 2021Q4

REPORT INFORMATION
  Report Type: Spontaneous
  Country: NO (occurrence: NO)
  Receive Date: 20211213
  Receipt Date: 20211213
  Transmission Date: 20220303
  Serious: Yes (Other)
  Sender: FDA-Public Use
  Company Number: NO-VIWITPHARMA-2021VWTLIT00028

PATIENT
  Sex: Female

DRUGS (5)
  1. LEVETIRACETAM [Suspect]
     Active Substance: LEVETIRACETAM
     Indication: Generalised tonic-clonic seizure
     Route: 065
  2. VALPROATE [Suspect]
     Active Substance: VALPROIC ACID
     Indication: Generalised tonic-clonic seizure
     Route: 065
  3. CLOBAZAM [Suspect]
     Active Substance: CLOBAZAM
     Indication: Generalised tonic-clonic seizure
     Route: 065
  4. STIRIPENTOL [Suspect]
     Active Substance: STIRIPENTOL
     Indication: Generalised tonic-clonic seizure
     Route: 065
  5. CANNABIDIOL [Interacting]
     Active Substance: CANNABIDIOL
     Indication: Status epilepticus
     Dosage: TITRATED TO 15 MG/KG/D 1 YEAR AGO
     Route: 065

REACTIONS (2)
  - Status epilepticus [Recovered/Resolved]
  - Drug ineffective [Unknown]
